FAERS Safety Report 20794927 (Version 4)
Quarter: 2023Q1

REPORT INFORMATION
  Report Type: Other
  Country: JP (occurrence: JP)
  Receive Date: 20220506
  Receipt Date: 20230227
  Transmission Date: 20230418
  Serious: Yes (Other)
  Sender: FDA-Public Use
  Company Number: JP-CHUGAI-2022016323

PATIENT
  Age: 66 Year
  Sex: Male
  Weight: 64.6 kg

DRUGS (13)
  1. ATEZOLIZUMAB [Suspect]
     Active Substance: ATEZOLIZUMAB
     Indication: Non-small cell lung cancer
     Dosage: 1200 MILLIGRAM, ONCE/3WEEKS
     Route: 041
     Dates: start: 20210929, end: 20220202
  2. ATEZOLIZUMAB [Suspect]
     Active Substance: ATEZOLIZUMAB
     Dosage: 1200 MILLIGRAM
     Route: 041
     Dates: start: 20220302, end: 20220330
  3. ATEZOLIZUMAB [Suspect]
     Active Substance: ATEZOLIZUMAB
     Dosage: 18/JAN/2023 MOST RECENT DOSE RECEIVED
     Route: 041
     Dates: start: 20220420
  4. BEVACIZUMAB [Suspect]
     Active Substance: BEVACIZUMAB
     Indication: Non-small cell lung cancer
     Route: 041
     Dates: start: 20210929, end: 20211201
  5. BEVACIZUMAB [Suspect]
     Active Substance: BEVACIZUMAB
     Route: 041
     Dates: start: 20211222, end: 20220202
  6. BEVACIZUMAB [Suspect]
     Active Substance: BEVACIZUMAB
     Dosage: 24/AUG/2022 MOST RECENT DOSE RECEIVED.
     Route: 041
     Dates: start: 20220420
  7. BEVACIZUMAB [Suspect]
     Active Substance: BEVACIZUMAB
     Route: 041
     Dates: start: 20220302, end: 20220330
  8. DECADRON [Suspect]
     Active Substance: DEXAMETHASONE
     Indication: Non-small cell lung cancer
     Dosage: 0.5 UNK
     Route: 048
  9. CARBOPLATIN [Concomitant]
     Active Substance: CARBOPLATIN
     Indication: Non-small cell lung cancer
     Dosage: 480 MILLIGRAM, SINGLE
     Route: 041
     Dates: start: 20210929, end: 20210929
  10. CARBOPLATIN [Concomitant]
     Active Substance: CARBOPLATIN
     Dosage: 430 MILLIGRAM
     Route: 041
     Dates: start: 20211020, end: 20211201
  11. PACLITAXEL [Concomitant]
     Active Substance: PACLITAXEL
     Indication: Non-small cell lung cancer
     Dosage: 300 MILLIGRAM, SINGLE
     Route: 041
     Dates: start: 20210929, end: 20210929
  12. PACLITAXEL [Concomitant]
     Active Substance: PACLITAXEL
     Dosage: 250 MILLIGRAM, ONCE/3WEEKS
     Route: 041
     Dates: start: 20211020, end: 20211201
  13. DECADRON [Concomitant]
     Active Substance: DEXAMETHASONE
     Dosage: 0.5 UNK
     Route: 048

REACTIONS (12)
  - Febrile neutropenia [Recovered/Resolved]
  - Flank pain [Recovered/Resolved]
  - Rash [Recovered/Resolved]
  - Cough [Recovered/Resolved]
  - Pruritus [Recovered/Resolved]
  - Headache [Recovered/Resolved]
  - Hypothyroidism [Not Recovered/Not Resolved]
  - Increased appetite [Recovered/Resolved]
  - Peripheral sensory neuropathy [Not Recovered/Not Resolved]
  - Diarrhoea [Recovered/Resolved]
  - Face oedema [Recovered/Resolved]
  - Proteinuria [Recovered/Resolved]

NARRATIVE: CASE EVENT DATE: 20211006
